FAERS Safety Report 5896240-5 (Version None)
Quarter: 2008Q3

REPORT INFORMATION
  Report Type: 
  Country: None (occurrence: None)
  Receive Date: 20080924
  Receipt Date: 20080912
  Transmission Date: 20090109
  Serious: Yes (Other)
  Sender: FDA-Public Use
  Company Number: US-PFIZER INC-2008064827

PATIENT
  Sex: Female
  Weight: 61.7 kg

DRUGS (6)
  1. CHANTIX [Suspect]
     Indication: SMOKING CESSATION THERAPY
     Route: 048
     Dates: start: 20071201, end: 20080601
  2. CHANTIX [Suspect]
     Indication: TOBACCO ABUSE
  3. TOPROL-XL [Concomitant]
  4. ZETIA [Concomitant]
  5. NASONEX [Concomitant]
  6. ALLEGRA [Concomitant]

REACTIONS (10)
  - BLOOD CALCIUM INCREASED [None]
  - BLOOD CREATININE INCREASED [None]
  - BLOOD UREA INCREASED [None]
  - BLOOD UREA NITROGEN/CREATININE RATIO INCREASED [None]
  - EPIDERMAL GROWTH FACTOR RECEPTOR DECREASED [None]
  - IMPAIRED FASTING GLUCOSE [None]
  - RED BLOOD CELL COUNT DECREASED [None]
  - RENAL FAILURE ACUTE [None]
  - SERUM FERRITIN INCREASED [None]
  - TREATMENT NONCOMPLIANCE [None]
